FAERS Safety Report 9987465 (Version 1)
Quarter: 2014Q1

REPORT INFORMATION
  Report Type: Report from Study
  Country: US (occurrence: US)
  Receive Date: 20140307
  Receipt Date: 20140307
  Transmission Date: 20141002
  Serious: Yes (Hospitalization)
  Sender: FDA-Public Use
  Company Number: US-ABBVIE-14P-163-1208887-00

PATIENT
  Sex: Male

DRUGS (3)
  1. HUMIRA [Suspect]
     Indication: CROHN^S DISEASE
     Route: 058
  2. PENTASA [Concomitant]
     Indication: CROHN^S DISEASE
  3. SYNTHROID [Concomitant]
     Indication: HYPOTHYROIDISM

REACTIONS (6)
  - Intestinal obstruction [Recovering/Resolving]
  - Back pain [Recovering/Resolving]
  - Vomiting [Recovering/Resolving]
  - Crohn^s disease [Recovering/Resolving]
  - Injection site urticaria [Not Recovered/Not Resolved]
  - Injection site pain [Not Recovered/Not Resolved]
